FAERS Safety Report 6597200-1 (Version None)
Quarter: 2010Q1

REPORT INFORMATION
  Report Type: 
  Country: None (occurrence: None)
  Receive Date: 20100223
  Receipt Date: 20100210
  Transmission Date: 20100710
  Serious: Yes (Other)
  Sender: FDA-Public Use
  Company Number: PHHY2010DE08802

PATIENT
  Sex: Male

DRUGS (1)
  1. ELIDEL [Suspect]
     Indication: LICHEN SCLEROSUS
     Dosage: THREE TIMES A WEEK
     Route: 061
     Dates: start: 20080101, end: 20100101

REACTIONS (2)
  - SKIN DISORDER [None]
  - SKIN HAEMORRHAGE [None]
